FAERS Safety Report 7338194-0 (Version None)
Quarter: 2011Q1

REPORT INFORMATION
  Report Type: 
  Country: None (occurrence: None)
  Receive Date: 20110303
  Receipt Date: 20110303
  Transmission Date: 20110831
  Serious: No
  Sender: FDA-Public Use
  Company Number: None

PATIENT
  Age: 68 Year
  Sex: Male
  Weight: 65.318 kg

DRUGS (2)
  1. RITUXIMAB 10MG/ML GENENTECH, INC [Suspect]
     Indication: NON-HODGKIN'S LYMPHOMA
     Dosage: 655MG EVERY 21 DAYS IV DRIP
     Route: 041
     Dates: start: 20110224, end: 20110224
  2. RITUXIMAB 10MG/ML GENENTECH, INC [Suspect]

REACTIONS (4)
  - SKIN WARM [None]
  - INFUSION RELATED REACTION [None]
  - DRY SKIN [None]
  - SKIN DISCOLOURATION [None]
